FAERS Safety Report 6704755-2 (Version None)
Quarter: 2010Q2

REPORT INFORMATION
  Report Type: 
  Country: None (occurrence: None)
  Receive Date: 20100430
  Receipt Date: 20091202
  Transmission Date: 20101027
  Serious: No
  Sender: FDA-Public Use
  Company Number: US-BAUSCH-2009BL006421

PATIENT
  Sex: Female

DRUGS (3)
  1. ALREX [Suspect]
     Indication: CONJUNCTIVITIS ALLERGIC
     Route: 047
     Dates: start: 20091022, end: 20091105
  2. THYROID TAB [Concomitant]
     Indication: HYPOTHYROIDISM
     Route: 048
  3. MECLIZINE [Concomitant]
     Indication: VERTIGO
     Dates: start: 20090501

REACTIONS (1)
  - DRUG INEFFECTIVE [None]
